FAERS Safety Report 16016566 (Version 1)
Quarter: 2019Q1

REPORT INFORMATION
  Report Type: Spontaneous
  Country: US (occurrence: US)
  Receive Date: 20190131
  Receipt Date: 20190131
  Transmission Date: 20190418
  Serious: Yes (Death)
  Sender: FDA-Public Use
  Company Number: None

PATIENT

DRUGS (1)
  1. LIDOCAINE HCL INJECTION [Suspect]
     Active Substance: LIDOCAINE HYDROCHLORIDE

REACTIONS (9)
  - Accidental overdose [None]
  - Drug monitoring procedure incorrectly performed [None]
  - Multiple organ dysfunction syndrome [None]
  - Device programming error [None]
  - Dose calculation error [None]
  - Haematotoxicity [None]
  - Mental status changes [None]
  - Incorrect drug administration rate [None]
  - End stage renal disease [None]
